FAERS Safety Report 18041654 (Version 1)
Quarter: 2020Q3

REPORT INFORMATION
  Report Type: Spontaneous
  Country: US (occurrence: US)
  Receive Date: 20200720
  Receipt Date: 20200720
  Transmission Date: 20201103
  Serious: Yes (Other)
  Sender: FDA-Public Use
  Company Number: US-AUROBINDO-AUR-APL-2009-00817

PATIENT
  Age: 5 Month
  Sex: Male

DRUGS (1)
  1. CEFDINIR FOR ORAL SUSPENSION 125 MG/5 ML [Suspect]
     Active Substance: CEFDINIR
     Indication: OTITIS MEDIA
     Dosage: UNK
     Route: 048

REACTIONS (2)
  - Drug interaction [Unknown]
  - Faeces discoloured [Recovered/Resolved]
